FAERS Safety Report 8450197-1 (Version None)
Quarter: 2012Q2

REPORT INFORMATION
  Report Type: 
  Country: None (occurrence: None)
  Receive Date: 20120620
  Receipt Date: 20120611
  Transmission Date: 20120825
  Serious: Yes (Other)
  Sender: FDA-Public Use
  Company Number: US-BAYER-2012-014740

PATIENT
  Age: 17 Year
  Sex: Female
  Weight: 63.492 kg

DRUGS (3)
  1. YAZ [Suspect]
     Indication: ACNE
     Dosage: UNK
     Dates: start: 20090101
  2. PROTONIX [Concomitant]
     Dosage: 40 MG, DAILY
     Dates: start: 20100601
  3. ZOFRAN [Concomitant]
     Dosage: 4 MG, PRN
     Dates: start: 20100601

REACTIONS (6)
  - ABDOMINAL PAIN [None]
  - CHOLECYSTITIS [None]
  - ANHEDONIA [None]
  - ANXIETY [None]
  - GALLBLADDER DISORDER [None]
  - NAUSEA [None]
